FAERS Safety Report 14343166 (Version 1)
Quarter: 2018Q1

REPORT INFORMATION
  Report Type: Spontaneous
  Country: US (occurrence: US)
  Receive Date: 20180102
  Receipt Date: 20180102
  Transmission Date: 20180509
  Serious: Yes (Other)
  Sender: FDA-Public Use
  Company Number: US-JNJFOC-20180100910

PATIENT

DRUGS (1)
  1. IMBRUVICA [Suspect]
     Active Substance: IBRUTINIB
     Indication: CHRONIC LYMPHOCYTIC LEUKAEMIA
     Route: 065
     Dates: start: 20150107

REACTIONS (4)
  - Immune thrombocytopenic purpura [Unknown]
  - Squamous cell carcinoma [Unknown]
  - Cellulitis [Unknown]
  - Basal cell carcinoma [Unknown]
